FAERS Safety Report 8616406 (Version 11)
Quarter: 2013Q2

REPORT INFORMATION
  Report Type: Spontaneous
  Country: US (occurrence: US)
  Receive Date: 20120615
  Receipt Date: 20130603
  Transmission Date: 20140414
  Serious: Yes (Hospitalization)
  Sender: FDA-Public Use
  Company Number: US-BIOGENIDEC-2012BI020569

PATIENT
  Age: 52 Year
  Sex: Female

DRUGS (10)
  1. TYSABRI [Suspect]
     Indication: MULTIPLE SCLEROSIS
     Route: 042
     Dates: start: 20111230, end: 20120227
  2. INSULIN [Concomitant]
  3. REGLAN [Concomitant]
     Dates: start: 2012, end: 2012
  4. ZOLOFT [Concomitant]
  5. BUMEX [Concomitant]
  6. BACLOFEN [Concomitant]
  7. PREDNISONE [Concomitant]
  8. MECLIZINE [Concomitant]
  9. NAPROXEN [Concomitant]
  10. PEPCID [Concomitant]

REACTIONS (12)
  - Pseudomembranous colitis [Recovered/Resolved]
  - Sepsis [Recovered/Resolved]
  - Necrotising colitis [Recovered/Resolved]
  - Enterococcal infection [Not Recovered/Not Resolved]
  - Abscess fungal [Not Recovered/Not Resolved]
  - Pelvic abscess [Not Recovered/Not Resolved]
  - Escherichia urinary tract infection [Recovered/Resolved]
  - Megacolon [Recovered/Resolved]
  - Heart rate increased [Recovered/Resolved]
  - Pneumothorax [Recovered/Resolved]
  - Blood pressure abnormal [Recovered/Resolved]
  - Diarrhoea [Recovered/Resolved]
